FAERS Safety Report 19430492 (Version 1)
Quarter: 2021Q2

REPORT INFORMATION
  Report Type: Spontaneous
  Country: US (occurrence: US)
  Receive Date: 20210618
  Receipt Date: 20210618
  Transmission Date: 20210717
  Serious: No
  Sender: FDA-Public Use
  Company Number: US-ROCHE-2754704

PATIENT
  Sex: Female

DRUGS (2)
  1. ACTEMRA [Suspect]
     Active Substance: TOCILIZUMAB
     Indication: GIANT CELL ARTERITIS
     Dosage: ON MONDAYS ;ONGOING: YES
     Route: 058
  2. PREDNISONE. [Concomitant]
     Active Substance: PREDNISONE
     Indication: GIANT CELL ARTERITIS
     Dosage: FOR 2 WEEKS, THEN TAPER TO 4MG, 3MG, 2MG, 1MG
     Route: 048

REACTIONS (3)
  - No adverse event [Unknown]
  - Product storage error [Unknown]
  - Product administration error [Unknown]
